FAERS Safety Report 5271553-9 (Version None)
Quarter: 2007Q1

REPORT INFORMATION
  Report Type: 
  Country: None (occurrence: None)
  Receive Date: 20070315
  Receipt Date: 20070307
  Transmission Date: 20070707
  Serious: Yes (Other)
  Sender: FDA-Public Use
  Company Number: CHNY2007DE00870

PATIENT
  Age: 55 Year
  Sex: Female

DRUGS (5)
  1. NICOTINE [Suspect]
     Indication: SMOKING CESSATION THERAPY
     Dosage: SEE IMAGE
     Route: 062
     Dates: start: 20070115, end: 20070123
  2. DURAZANIL (BROMAZEPAM) [Concomitant]
  3. DICLOFENAC (DICLOFENAC) [Concomitant]
  4. TEGRETOL [Concomitant]
  5. THYRONAJOD (LEVOTHYROXINE SODIUM, POTASSIUM IODIDE) [Concomitant]

REACTIONS (1)
  - HYPERSENSITIVITY [None]
